FAERS Safety Report 5227065-1 (Version None)
Quarter: 2007Q1

REPORT INFORMATION
  Report Type: 
  Country: None (occurrence: None)
  Receive Date: 20070201
  Receipt Date: 20070201
  Transmission Date: 20070707
  Serious: Yes (Other)
  Sender: FDA-Public Use
  Company Number: None

PATIENT
  Age: 54 Year
  Sex: Male
  Weight: 104.3273 kg

DRUGS (6)
  1. CLONAZEPAM [Suspect]
     Indication: MYOCLONUS
     Dosage: 1 MG TWICE A DAY ORAL
     Route: 048
  2. TOPROL-XL [Concomitant]
  3. LIPITOR [Concomitant]
  4. TIME RELEASE B COMPLEX [Concomitant]
  5. MULTI-VITAMIN [Concomitant]
  6. MAGNESIUM [Concomitant]

REACTIONS (5)
  - AURA [None]
  - FEELING ABNORMAL [None]
  - MOTOR DYSFUNCTION [None]
  - MYOCLONUS [None]
  - PHARMACEUTICAL PRODUCT COMPLAINT [None]
